FAERS Safety Report 20731349 (Version 1)
Quarter: 2022Q2

REPORT INFORMATION
  Report Type: Spontaneous
  Country: CA (occurrence: None)
  Receive Date: 20220420
  Receipt Date: 20220420
  Transmission Date: 20220721
  Serious: No
  Sender: FDA-Public Use
  Company Number: None

PATIENT
  Sex: Female
  Weight: 72 kg

DRUGS (3)
  1. BISOPROLOL [Suspect]
     Active Substance: BISOPROLOL
     Indication: Hypertension
     Dosage: OTHER QUANTITY : 1 TABLET(S);?
     Route: 048
     Dates: start: 20200717, end: 20220418
  2. TELMISARTAN [Concomitant]
     Active Substance: TELMISARTAN
  3. SPIRONOLCTONE [Concomitant]

REACTIONS (5)
  - Alopecia [None]
  - Hypertension [None]
  - Stress [None]
  - Therapy cessation [None]
  - Drug ineffective [None]
